FAERS Safety Report 24532083 (Version 1)
Quarter: 2024Q4

REPORT INFORMATION
  Report Type: Spontaneous
  Country: US (occurrence: US)
  Receive Date: 20241022
  Receipt Date: 20241022
  Transmission Date: 20250114
  Serious: No
  Sender: ALK-ABELLO
  Company Number: US-ALK-ABELLO A/S-2024AA003794

PATIENT

DRUGS (1)
  1. GRASTEK [Suspect]
     Active Substance: PHLEUM PRATENSE POLLEN
     Indication: Product used for unknown indication

REACTIONS (2)
  - Enlarged uvula [Unknown]
  - Mouth swelling [Unknown]
